FAERS Safety Report 4944973-7 (Version None)
Quarter: 2006Q1

REPORT INFORMATION
  Report Type: 
  Country: None (occurrence: None)
  Receive Date: 20060117
  Receipt Date: 20050524
  Transmission Date: 20060701
  Serious: Yes (Hospitalization)
  Sender: FDA-Public Use
  Company Number: A03200501577

PATIENT
  Age: 78 Year
  Sex: Female
  Weight: 72 kg

DRUGS (1)
  1. PLAVIX [Suspect]
     Indication: CATHETERISATION CARDIAC
     Dosage: 75 MG QD - ORAL
     Route: 048
     Dates: end: 20050501

REACTIONS (3)
  - RASH GENERALISED [None]
  - RASH PAPULAR [None]
  - RASH VESICULAR [None]
